FAERS Safety Report 12280479 (Version 1)
Quarter: 2016Q2

REPORT INFORMATION
  Report Type: Spontaneous
  Country: IT (occurrence: IT)
  Receive Date: 20160419
  Receipt Date: 20160419
  Transmission Date: 20160815
  Serious: Yes (Other)
  Sender: FDA-Public Use
  Company Number: IT-ACCORD-039661

PATIENT
  Age: 69 Year
  Sex: Female

DRUGS (5)
  1. RANITIDINE TEVA [Concomitant]
     Indication: PREMEDICATION
     Dosage: STRENGTH: 50 MG
     Route: 042
     Dates: start: 20160325, end: 20160325
  2. SODIUM CHLORIDE. [Concomitant]
     Active Substance: SODIUM CHLORIDE
     Route: 042
     Dates: start: 20160224
  3. DEXAMETHASONE HOSPIRA [Concomitant]
     Indication: PREMEDICATION
     Dosage: STRENGTH: 8 MG/2 ML
     Route: 042
     Dates: start: 20160325, end: 20160325
  4. PACLITAXEL ACCORD [Suspect]
     Active Substance: PACLITAXEL
     Indication: BREAST CANCER
     Route: 042
     Dates: start: 20160224, end: 20160325
  5. BEVACIZUMAB [Concomitant]
     Active Substance: BEVACIZUMAB
     Dates: start: 20160224

REACTIONS (3)
  - Generalised erythema [Recovered/Resolved]
  - Pain [Recovered/Resolved]
  - Blood pressure increased [Recovered/Resolved]

NARRATIVE: CASE EVENT DATE: 20160325
